FAERS Safety Report 9373229 (Version 2)
Quarter: 2013Q3

REPORT INFORMATION
  Report Type: Spontaneous
  Country: JP (occurrence: JP)
  Receive Date: 20130627
  Receipt Date: 20130715
  Transmission Date: 20140515
  Serious: Yes (Life-Threatening, Other)
  Sender: FDA-Public Use
  Company Number: JP-ELI_LILLY_AND_COMPANY-JP201305009166

PATIENT
  Age: 54 Year
  Sex: Male

DRUGS (5)
  1. ZYPREXA [Suspect]
     Indication: SCHIZOPHRENIA
     Dosage: UNK
     Route: 048
     Dates: start: 20130514, end: 20130519
  2. SERENACE [Concomitant]
     Dosage: UNK
     Route: 042
     Dates: start: 20130513, end: 20130513
  3. SULBACTAM/AMPICIL [Concomitant]
     Indication: PNEUMONIA ASPIRATION
     Dosage: UNK
     Route: 042
     Dates: start: 20130516, end: 20130520
  4. LACTEC G [Concomitant]
     Indication: FLUID REPLACEMENT
     Dosage: UNK
     Route: 042
  5. PHYSIO [Concomitant]
     Indication: FLUID REPLACEMENT
     Route: 042

REACTIONS (3)
  - Myoclonus [Recovered/Resolved]
  - Depressed level of consciousness [Unknown]
  - Dyskinesia [Unknown]
